FAERS Safety Report 6402677-8 (Version None)
Quarter: 2009Q4

REPORT INFORMATION
  Report Type: 
  Country: None (occurrence: None)
  Receive Date: 20091009
  Receipt Date: 20090930
  Transmission Date: 20100525
  Serious: Yes (Other)
  Sender: FDA-Public Use
  Company Number: ADR34212009

PATIENT
  Age: 39 Year
  Sex: Female

DRUGS (6)
  1. CIPROFLOXACIN [Suspect]
     Dates: end: 20070921
  2. TIGECYCLINE [Concomitant]
  3. CASPOFUNGI [Concomitant]
  4. LORATADINE [Concomitant]
  5. PARACETAMOL [Concomitant]
  6. RANITIDINE [Concomitant]

REACTIONS (2)
  - MOUTH ULCERATION [None]
  - TONGUE ULCERATION [None]
